FAERS Safety Report 6442340-0 (Version None)
Quarter: 2009Q4

REPORT INFORMATION
  Report Type: 
  Country: None (occurrence: None)
  Receive Date: 20091112
  Receipt Date: 20091030
  Transmission Date: 20100525
  Serious: Yes (Other)
  Sender: FDA-Public Use
  Company Number: 2009EU001650

PATIENT
  Age: 31 Year
  Sex: Female

DRUGS (2)
  1. PROTOPIC [Suspect]
     Indication: ECZEMA
     Dosage: 0.1 %,  /D, TOPICAL
     Route: 061
  2. CORTICOSTEROIDS, DERMATOLOGICAL PREPARATION [Concomitant]

REACTIONS (1)
  - MYCOSIS FUNGOIDES [None]
